FAERS Safety Report 5661589-8 (Version None)
Quarter: 2008Q1

REPORT INFORMATION
  Report Type: 
  Country: None (occurrence: None)
  Receive Date: 20080312
  Receipt Date: 20080307
  Transmission Date: 20080703
  Serious: Yes (Death, Other)
  Sender: FDA-Public Use
  Company Number: PHBS2008CH03049

PATIENT
  Age: 8 Year
  Sex: Female

DRUGS (22)
  1. PROGRAF [Suspect]
     Indication: LIVER TRANSPLANT
     Route: 065
     Dates: start: 20070727, end: 20070806
  2. PROSTIN E2 [Suspect]
     Indication: LIVER TRANSPLANT
     Route: 065
     Dates: start: 20070727, end: 20070731
  3. HEPARIN [Concomitant]
     Dates: start: 20070727, end: 20070807
  4. ZINACEF [Concomitant]
     Route: 042
     Dates: start: 20070727, end: 20070728
  5. GARAMYCIN [Concomitant]
     Route: 042
     Dates: start: 20070727, end: 20070728
  6. AMPHO-MORONAL [Concomitant]
     Route: 042
     Dates: start: 20070727, end: 20070728
  7. MORPHINE HCL ELIXIR [Concomitant]
     Dates: start: 20070727, end: 20070708
  8. CYMEVENE [Concomitant]
     Dates: start: 20070727, end: 20070809
  9. NIPRIDE [Concomitant]
     Route: 042
     Dates: start: 20070727, end: 20070729
  10. PERFALGAN [Concomitant]
     Route: 042
     Dates: start: 20070727, end: 20070807
  11. ASPIRIN [Concomitant]
     Dates: start: 20070727, end: 20070807
  12. NEXIUM [Concomitant]
     Dosage: 40 MG/D
     Dates: start: 20070803, end: 20070807
  13. TRINITROSAN [Concomitant]
     Dates: start: 20070727, end: 20070730
  14. LASIX [Concomitant]
     Dates: start: 20070727, end: 20070727
  15. TIENAM [Concomitant]
     Dates: start: 20070728, end: 20070803
  16. VANCOMYCIN [Concomitant]
     Dates: start: 20070727, end: 20070730
  17. DOBUTAMINE [Concomitant]
     Route: 042
     Dates: start: 20070729, end: 20070730
  18. ADALAT [Concomitant]
     Dosage: 40 MG/D
     Dates: start: 20070731, end: 20070803
  19. SOLU-MEDROL [Concomitant]
     Dates: start: 20070801, end: 20070809
  20. BACTRIM [Concomitant]
     Dates: start: 20070803, end: 20070807
  21. SIMULECT [Suspect]
     Indication: LIVER TRANSPLANT
     Dosage: 20 MG, ONCE/SINGLE
     Dates: start: 20070727, end: 20070727
  22. SIMULECT [Suspect]
     Dosage: 20 MG, ONCE/SINGLE
     Dates: start: 20070731, end: 20070731

REACTIONS (15)
  - ASCITES [None]
  - BLOOD PRESSURE FLUCTUATION [None]
  - CAPILLARY LEAK SYNDROME [None]
  - CARDIAC ARREST [None]
  - GENERAL PHYSICAL HEALTH DETERIORATION [None]
  - HAEMODIALYSIS [None]
  - HAEMODYNAMIC INSTABILITY [None]
  - HYPERTENSION [None]
  - PERICARDIAL DRAINAGE [None]
  - PERICARDIAL EFFUSION [None]
  - PLEURAL EFFUSION [None]
  - PYREXIA [None]
  - RENAL IMPAIRMENT [None]
  - SYSTEMIC INFLAMMATORY RESPONSE SYNDROME [None]
  - THORACIC CAVITY DRAINAGE [None]
